FAERS Safety Report 5070531-2 (Version None)
Quarter: 2006Q3

REPORT INFORMATION
  Report Type: 
  Country: None (occurrence: None)
  Receive Date: 20060804
  Receipt Date: 20060724
  Transmission Date: 20061208
  Serious: Yes (Congenital Anomaly)
  Sender: FDA-Public Use
  Company Number: PHBS2006JP11251

PATIENT
  Age: 10 Month

DRUGS (3)
  1. TEGRETOL [Suspect]
     Route: 064
  2. HYDANTOL [Concomitant]
     Route: 064
  3. DEPAKENE [Concomitant]
     Route: 064

REACTIONS (4)
  - DRUG EXPOSURE DURING PREGNANCY [None]
  - TOOTH DEVELOPMENT DISORDER [None]
  - TOOTH HYPOPLASIA [None]
  - TOOTH MALFORMATION [None]
